FAERS Safety Report 4698699-8 (Version None)
Quarter: 2005Q2

REPORT INFORMATION
  Report Type: 
  Country: None (occurrence: None)
  Receive Date: 20050622
  Receipt Date: 20050503
  Transmission Date: 20051028
  Serious: No
  Sender: FDA-Public Use
  Company Number: SU-2005-003552

PATIENT

DRUGS (1)
  1. BENICAR HCT [Suspect]
     Dosage: 40.25 MG UNK PO
     Route: 048

REACTIONS (1)
  - RENAL FUNCTION TEST ABNORMAL [None]
